FAERS Safety Report 8277143-8 (Version None)
Quarter: 2012Q2

REPORT INFORMATION
  Report Type: 
  Country: None (occurrence: None)
  Receive Date: 20120412
  Receipt Date: 20120409
  Transmission Date: 20120825
  Serious: Yes (Other)
  Sender: FDA-Public Use
  Company Number: US-PFIZER INC-2012088545

PATIENT
  Sex: Female
  Weight: 55 kg

DRUGS (7)
  1. NEURONTIN [Suspect]
     Dosage: 300 MG, 3X/DAY
     Route: 048
     Dates: start: 20100901
  2. CYMBALTA [Suspect]
     Indication: DEPRESSION
     Dosage: 30 MG, UNK
     Dates: start: 20100801, end: 20100101
  3. NEURONTIN [Suspect]
     Indication: PAIN
     Dosage: 100 MG, 3X/DAY
     Route: 048
     Dates: start: 20100801, end: 20100901
  4. ACETYLSALICYLIC ACID [Concomitant]
     Dosage: 325 MG, UNK
  5. LIPITOR [Suspect]
     Indication: BLOOD CHOLESTEROL INCREASED
     Dosage: 40 MG, 1X/DAY
     Route: 048
     Dates: start: 20100801
  6. HYDROCHLOROTHIAZIDE [Concomitant]
     Dosage: 1X/DAY
  7. COZAAR [Concomitant]
     Indication: HYPERTENSION
     Dosage: 100 MG, UNK
     Dates: start: 20100801

REACTIONS (3)
  - PAIN [None]
  - HYPERSOMNIA [None]
  - DRUG INEFFECTIVE [None]
